FAERS Safety Report 5925945-2 (Version None)
Quarter: 2008Q4

REPORT INFORMATION
  Report Type: 
  Country: None (occurrence: None)
  Receive Date: 20081021
  Receipt Date: 20081017
  Transmission Date: 20090506
  Serious: No
  Sender: FDA-Public Use
  Company Number: US-B.I. PHARMACEUTICALS,INC./RIDGEFIELD-2008-BP-15988BP

PATIENT
  Age: 67 Year
  Sex: Female

DRUGS (1)
  1. ZANTAC 75 [Suspect]
     Indication: HYPERCHLORHYDRIA
     Dosage: 75MG
     Route: 048
     Dates: start: 20081017

REACTIONS (1)
  - HEADACHE [None]
